FAERS Safety Report 12574338 (Version 1)
Quarter: 2016Q3

REPORT INFORMATION
  Report Type: Spontaneous
  Country: US (occurrence: None)
  Receive Date: 20160719
  Receipt Date: 20160719
  Transmission Date: 20161109
  Serious: Yes (Life-Threatening)
  Sender: FDA-Public Use
  Company Number: None

PATIENT
  Age: 38 Year
  Sex: Male
  Weight: 99.79 kg

DRUGS (1)
  1. MAGNEVIST [Suspect]
     Active Substance: GADOPENTETATE DIMEGLUMINE
     Indication: MASS
     Dosage: 15 CC 1 IV ANTICUPITAL VEIN
     Route: 042
     Dates: start: 20160627, end: 20160627

REACTIONS (5)
  - Asthenia [None]
  - Nausea [None]
  - Vomiting [None]
  - Contrast media allergy [None]
  - Pulse abnormal [None]

NARRATIVE: CASE EVENT DATE: 20160627
